FAERS Safety Report 9089373 (Version 1)
Quarter: 2013Q1

REPORT INFORMATION
  Report Type: Spontaneous
  Country: US (occurrence: US)
  Receive Date: 20130218
  Receipt Date: 20130218
  Transmission Date: 20140127
  Serious: Yes (Other)
  Sender: FDA-Public Use
  Company Number: US-AMGEN-USASP2013009656

PATIENT
  Age: 55 Year
  Sex: Female

DRUGS (2)
  1. ENBREL [Suspect]
     Indication: RHEUMATOID ARTHRITIS
     Dosage: 50 MG, QWK
     Dates: start: 20121109, end: 20130207
  2. METHOTREXATE [Concomitant]
     Dosage: 25 MG, QWK
     Dates: start: 2010

REACTIONS (3)
  - Partial seizures [Recovered/Resolved]
  - Grand mal convulsion [Recovered/Resolved]
  - Dyspnoea [Recovered/Resolved]
